FAERS Safety Report 9426738 (Version 1)
Quarter: 2013Q3

REPORT INFORMATION
  Report Type: Spontaneous
  Country: US (occurrence: US)
  Receive Date: 20130730
  Receipt Date: 20130730
  Transmission Date: 20140515
  Serious: No
  Sender: FDA-Public Use
  Company Number: US-SANOFI-AVENTIS-2012SA089683

PATIENT
  Sex: Male

DRUGS (1)
  1. ZOLPIDEM TARTRATE [Suspect]
     Dosage: DOSGAE REPORTED AS: TOOK FOR 7 YEARS
     Route: 048
     Dates: start: 2011, end: 20121203

REACTIONS (2)
  - Feeling abnormal [Not Recovered/Not Resolved]
  - Drug abuse [Unknown]
